FAERS Safety Report 4476338-9 (Version None)
Quarter: 2004Q4

REPORT INFORMATION
  Report Type: 
  Country: None (occurrence: None)
  Receive Date: 20041016
  Receipt Date: 20041008
  Transmission Date: 20050328
  Serious: Yes (Other)
  Sender: FDA-Public Use
  Company Number: BR-MERCK-0410BRA00305

PATIENT
  Age: 58 Year
  Sex: Male

DRUGS (3)
  1. CAPTOPRIL [Concomitant]
     Route: 065
     Dates: start: 20040101
  2. FAMOTIDINE [Concomitant]
     Route: 065
  3. VIOXX [Suspect]
     Indication: BURSITIS
     Route: 048
     Dates: start: 20010101

REACTIONS (5)
  - ANGINA UNSTABLE [None]
  - CHEST PAIN [None]
  - INTRACRANIAL ANEURYSM [None]
  - VISUAL DISTURBANCE [None]
  - VOMITING [None]
